FAERS Safety Report 14368826 (Version 5)
Quarter: 2018Q2

REPORT INFORMATION
  Report Type: Spontaneous
  Country: US (occurrence: US)
  Receive Date: 20180109
  Receipt Date: 20180411
  Transmission Date: 20180711
  Serious: Yes (Other)
  Sender: FDA-Public Use
  Company Number: US-PFIZER INC-2018003625

PATIENT
  Age: 52 Year
  Sex: Female
  Weight: 79.82 kg

DRUGS (24)
  1. SUTENT [Suspect]
     Active Substance: SUNITINIB MALATE
     Indication: LEIOMYOSARCOMA
     Dosage: 50 MG, CYCLIC (DAILY; 5 DAYS PER WEEK/OFF M-TH)
     Dates: start: 201710
  2. ANUSOL-HC [Concomitant]
     Dosage: UNK
  3. ASCORBIC ACID. [Concomitant]
     Active Substance: ASCORBIC ACID
     Dosage: UNK
  4. FERROUS SULFATE. [Concomitant]
     Active Substance: FERROUS SULFATE
     Dosage: UNK
  5. LEVAQUIN [Concomitant]
     Active Substance: LEVOFLOXACIN
     Dosage: UNK
  6. EMERGEN-C [Concomitant]
     Active Substance: VITAMINS
     Dosage: UNK
  7. GABAPENTIN. [Concomitant]
     Active Substance: GABAPENTIN
     Dosage: UNK
  8. HYDROCHLOROTHIAZIDE. [Concomitant]
     Active Substance: HYDROCHLOROTHIAZIDE
     Dosage: UNK
  9. KLOR-CON [Concomitant]
     Active Substance: POTASSIUM CHLORIDE
     Dosage: UNK
     Dates: end: 20180101
  10. MELATONIN [Concomitant]
     Active Substance: MELATONIN
     Dosage: UNK
  11. ATIVAN [Concomitant]
     Active Substance: LORAZEPAM
     Dosage: UNK
  12. TYLENOL [Concomitant]
     Active Substance: ACETAMINOPHEN
     Dosage: UNK
  13. DILAUDID [Concomitant]
     Active Substance: HYDROMORPHONE HYDROCHLORIDE
     Dosage: UNK
  14. MUCINEX [Concomitant]
     Active Substance: GUAIFENESIN
     Dosage: UNK
  15. MIRACLE MINERAL SOLUTION [Concomitant]
     Active Substance: SODIUM CHLORITE
     Dosage: UNK
  16. LIDOCAINE AND PRILOCAINE [Concomitant]
     Active Substance: LIDOCAINE\PRILOCAINE
     Dosage: UNK
  17. TUSSIONEX PENNKINETIC [Concomitant]
     Active Substance: CHLORPHENIRAMINE\HYDROCODONE
     Dosage: UNK
  18. ZOFRAN [Concomitant]
     Active Substance: ONDANSETRON HYDROCHLORIDE
     Dosage: UNK
  19. DURAGESIC [Concomitant]
     Active Substance: FENTANYL
     Dosage: UNK
  20. BISACODYL. [Concomitant]
     Active Substance: BISACODYL
     Dosage: UNK
  21. CLONAZEPAM. [Concomitant]
     Active Substance: CLONAZEPAM
     Dosage: UNK
  22. METOPROLOL. [Concomitant]
     Active Substance: METOPROLOL
     Dosage: UNK
  23. PROMETHAZINE [Concomitant]
     Active Substance: PROMETHAZINE\PROMETHAZINE HYDROCHLORIDE
     Dosage: UNK
  24. CYCLOBENZAPRINE. [Concomitant]
     Active Substance: CYCLOBENZAPRINE
     Dosage: UNK

REACTIONS (7)
  - Neoplasm progression [Unknown]
  - Painful respiration [Unknown]
  - Hypogeusia [Recovering/Resolving]
  - Product use in unapproved indication [Unknown]
  - Chest injury [Unknown]
  - Fatigue [Recovering/Resolving]
  - Pneumonia [Unknown]
